FAERS Safety Report 11483646 (Version 2)
Quarter: 2015Q3

REPORT INFORMATION
  Report Type: Spontaneous
  Country: US (occurrence: US)
  Receive Date: 20150903
  Receipt Date: 20150903
  Transmission Date: 20151125
  Serious: No
  Sender: FDA-Public Use
  Company Number: US-ELI_LILLY_AND_COMPANY-US201205001177

PATIENT
  Age: 38 Year
  Sex: Female

DRUGS (6)
  1. ABILIFY [Concomitant]
     Active Substance: ARIPIPRAZOLE
  2. CYMBALTA [Suspect]
     Active Substance: DULOXETINE HYDROCHLORIDE
     Dosage: 60 MG, EACH MORNING
     Dates: start: 20120402
  3. VALIUM [Concomitant]
     Active Substance: DIAZEPAM
  4. ROBAXIN [Concomitant]
     Active Substance: METHOCARBAMOL
     Dosage: UNK, EACH EVENING
  5. ROBAXIN [Concomitant]
     Active Substance: METHOCARBAMOL
     Dosage: 750 MG, UNKNOWN
  6. TRAZODONE [Concomitant]
     Active Substance: TRAZODONE HYDROCHLORIDE

REACTIONS (2)
  - Drug effect decreased [Not Recovered/Not Resolved]
  - Unevaluable event [Unknown]
